FAERS Safety Report 7048895-X (Version None)
Quarter: 2010Q4

REPORT INFORMATION
  Report Type: 
  Country: None (occurrence: None)
  Receive Date: 20101012
  Receipt Date: 20100927
  Transmission Date: 20110411
  Serious: Yes (Other)
  Sender: FDA-Public Use
  Company Number: SE-001313

PATIENT
  Sex: Male

DRUGS (1)
  1. TETRAHYDROBIOPTERIN (TETRAHYDROBIOPTERIN) [Suspect]
     Indication: AUTISM
     Dosage: 3 MG/KG BID ORAL
     Route: 048

REACTIONS (1)
  - HYPERSENSITIVITY [None]
